FAERS Safety Report 8962296 (Version 3)
Quarter: 2013Q1

REPORT INFORMATION
  Report Type: Other
  Country: GB (occurrence: GB)
  Receive Date: 20121212
  Receipt Date: 20130117
  Transmission Date: 20140127
  Serious: Yes (Other)
  Sender: FDA-Public Use
  Company Number: GB-WATSON-2012-21793

PATIENT
  Age: 46 Year
  Sex: Female

DRUGS (3)
  1. METRONIDAZOLE (UNKNOWN) [Suspect]
     Indication: TOOTH INFECTION
     Dosage: 3 DF, UNKNOWN
     Route: 048
     Dates: start: 20121031, end: 20121101
  2. NUROFEN [Concomitant]
     Indication: PRODUCT USED FOR UNKNOWN INDICATION
     Dosage: 200 MG, Q6H
     Route: 065
  3. PARACETAMOL [Concomitant]
     Indication: ANALGESIC THERAPY
     Dosage: 500 MG, BID
     Route: 065

REACTIONS (15)
  - Neuropathy peripheral [Recovered/Resolved]
  - Dizziness [Recovered/Resolved]
  - Paraesthesia [Unknown]
  - Muscular weakness [Recovered/Resolved]
  - Headache [Recovered/Resolved]
  - Decreased appetite [Recovered/Resolved]
  - Gastrointestinal disorder [Recovered/Resolved]
  - Asthenia [Recovered/Resolved]
  - Fatigue [Recovered/Resolved]
  - Weight decreased [Recovered/Resolved]
  - Hyperacusis [Recovered/Resolved]
  - Hypoaesthesia [Unknown]
  - Neck pain [Recovered/Resolved]
  - Abnormal behaviour [Not Recovered/Not Resolved]
  - Diarrhoea [Unknown]
